FAERS Safety Report 4915945-3 (Version None)
Quarter: 2006Q1

REPORT INFORMATION
  Report Type: 
  Country: None (occurrence: None)
  Receive Date: 20060214
  Receipt Date: 20060131
  Transmission Date: 20060701
  Serious: Yes (Other)
  Sender: FDA-Public Use
  Company Number: USA-2006-0023517

PATIENT
  Age: 69 Year
  Sex: Male
  Weight: 111.1 kg

DRUGS (6)
  1. MORPHINE SULFATE [Suspect]
     Dosage: UNK
     Route: 065
  2. FLOMAX (MORNIFLUMATE) [Concomitant]
  3. ZOLOFT [Concomitant]
  4. ATENOLOL [Concomitant]
  5. LIPITOR [Concomitant]
  6. ASPIRIN [Concomitant]

REACTIONS (14)
  - BACK PAIN [None]
  - CHOKING [None]
  - DEPRESSION [None]
  - INITIAL INSOMNIA [None]
  - MENTAL DISORDER [None]
  - NOCTURIA [None]
  - OEDEMA PERIPHERAL [None]
  - PAIN [None]
  - SHOULDER PAIN [None]
  - SLEEP APNOEA SYNDROME [None]
  - SLEEP TALKING [None]
  - SNORING [None]
  - URINARY HESITATION [None]
  - WEIGHT INCREASED [None]
